FAERS Safety Report 9219523 (Version 1)
Quarter: 2013Q2

REPORT INFORMATION
  Report Type: Report from Study
  Country: LB (occurrence: LB)
  Receive Date: 20130409
  Receipt Date: 20130409
  Transmission Date: 20140414
  Serious: Yes (Death)
  Sender: FDA-Public Use
  Company Number: LB-SANOFI-AVENTIS-2013SA036251

PATIENT
  Age: 80 Year
  Sex: Female

DRUGS (6)
  1. LANTUS SOLOSTAR [Suspect]
     Indication: DIABETES MELLITUS
     Dosage: DOSE:27 UNIT(S)
     Route: 058
     Dates: start: 201205, end: 201303
  2. SOLOSTAR [Suspect]
     Indication: DEVICE THERAPY
     Dates: start: 201205, end: 201303
  3. AMARYL [Concomitant]
     Indication: DIABETES MELLITUS
     Route: 048
     Dates: end: 201303
  4. ZYLORIC [Concomitant]
     Route: 048
     Dates: end: 201303
  5. CONCOR [Concomitant]
     Route: 048
     Dates: end: 201303
  6. LASIX [Concomitant]
     Route: 048
     Dates: end: 201303

REACTIONS (1)
  - General physical health deterioration [Fatal]
